FAERS Safety Report 10212947 (Version 1)
Quarter: 2014Q2

REPORT INFORMATION
  Report Type: Spontaneous
  Country: US (occurrence: US)
  Receive Date: 20140602
  Receipt Date: 20140602
  Transmission Date: 20141212
  Serious: No
  Sender: FDA-Public Use
  Company Number: US-009507513-1405USA009430

PATIENT
  Sex: Female
  Weight: 158.73 kg

DRUGS (2)
  1. NUVARING [Suspect]
     Indication: CONTRACEPTION
     Dosage: 3 WEES IN/1 WEEK OUT
     Route: 067
     Dates: start: 201309
  2. NUVARING [Suspect]
     Indication: MENSTRUAL CYCLE MANAGEMENT

REACTIONS (4)
  - Nasopharyngitis [Unknown]
  - Menorrhagia [Recovering/Resolving]
  - Device colour issue [Unknown]
  - Muscle spasms [Unknown]
